FAERS Safety Report 8491650-4 (Version None)
Quarter: 2012Q3

REPORT INFORMATION
  Report Type: 
  Country: None (occurrence: None)
  Receive Date: 20120706
  Receipt Date: 20120628
  Transmission Date: 20120928
  Serious: Yes (Hospitalization)
  Sender: FDA-Public Use
  Company Number: US-B.I. PHARMACEUTICALS,INC./RIDGEFIELD-2012-BP-15022YA

PATIENT
  Sex: Female
  Weight: 94.79 kg

DRUGS (14)
  1. TAMSULOSIN HCL [Suspect]
     Indication: BLADDER OBSTRUCTION
     Dosage: 0.4 MG
     Route: 048
  2. OMEPRAZOLE [Suspect]
     Indication: GASTROOESOPHAGEAL REFLUX DISEASE
     Dosage: 20.6 MG
     Route: 065
  3. VITAMIN D [Suspect]
     Indication: VITAMIN D DEFICIENCY
     Route: 065
  4. LYRICA [Suspect]
     Dosage: 150 MG
     Route: 048
  5. LISINOPRIL [Suspect]
     Indication: HYPERTENSION
     Dosage: 10 MG
     Route: 065
  6. METHADONE HCL [Suspect]
     Indication: BACK DISORDER
     Dosage: 30 MG
     Route: 065
  7. BISACODYL [Suspect]
     Indication: IRRITABLE BOWEL SYNDROME
     Dosage: 5 MG
     Route: 065
  8. METHADONE HCL [Suspect]
     Dosage: 20 MG
     Route: 065
  9. OSTE BI-FLEX [Suspect]
     Indication: BACK PAIN
     Route: 065
  10. ALLEGRA [Suspect]
     Indication: HYPERSENSITIVITY
     Route: 065
  11. LYRICA [Suspect]
     Indication: FIBROMYALGIA
     Dosage: 300 MG
     Route: 048
     Dates: start: 20110101
  12. ATORVASTATIN CALCIUM [Suspect]
     Indication: BLOOD CHOLESTEROL INCREASED
     Dosage: 80 MG
     Route: 065
  13. ACETYLSALICYLIC ACID SRT [Suspect]
     Indication: HYPERTENSION
     Dosage: 81 MG
     Route: 065
  14. ABILIFY [Suspect]
     Indication: DEPRESSION
     Route: 048

REACTIONS (1)
  - DRUG INTERACTION [None]
